FAERS Safety Report 25145002 (Version 1)
Quarter: 2025Q1

REPORT INFORMATION
  Report Type: Spontaneous
  Country: US (occurrence: None)
  Receive Date: 20250331
  Receipt Date: 20250331
  Transmission Date: 20250408
  Serious: Yes (Hospitalization, Disabling)
  Sender: FDA-CTU
  Company Number: None

PATIENT
  Age: 56 Year
  Sex: Female
  Weight: 83.25 kg

DRUGS (9)
  1. YERVOY [Suspect]
     Active Substance: IPILIMUMAB
     Indication: Metastatic malignant melanoma
     Route: 050
     Dates: start: 20230503, end: 20230504
  2. OPDIVO [Suspect]
     Active Substance: NIVOLUMAB
  3. MAXZIDE [Concomitant]
     Active Substance: HYDROCHLOROTHIAZIDE\TRIAMTERENE
  4. VITAMIN D [Concomitant]
     Active Substance: VITAMIN D NOS
  5. PERCOCET [Concomitant]
     Active Substance: ACETAMINOPHEN\OXYCODONE HYDROCHLORIDE
  6. POTASSIUM [Concomitant]
     Active Substance: POTASSIUM
  7. PANTOPRAZOLE [Concomitant]
     Active Substance: PANTOPRAZOLE
  8. FELDENE [Concomitant]
     Active Substance: PIROXICAM
  9. VALTREX [Concomitant]
     Active Substance: VALACYCLOVIR HYDROCHLORIDE

REACTIONS (17)
  - Vulvovaginal swelling [None]
  - Vaginal haemorrhage [None]
  - Infection [None]
  - Vaginal mucosal blistering [None]
  - Vulvovaginal injury [None]
  - Toxicity to various agents [None]
  - Weight decreased [None]
  - Rash vesicular [None]
  - Skin exfoliation [None]
  - Optic ischaemic neuropathy [None]
  - Blindness [None]
  - Bladder disorder [None]
  - Scar [None]
  - Urethral obstruction [None]
  - Post procedural complication [None]
  - Sexual dysfunction [None]
  - Feeding disorder [None]

NARRATIVE: CASE EVENT DATE: 20230503
